FAERS Safety Report 5512864-9 (Version None)
Quarter: 2007Q4

REPORT INFORMATION
  Report Type: 
  Country: None (occurrence: None)
  Receive Date: 20071112
  Receipt Date: 20071112
  Transmission Date: 20080405
  Serious: Yes (Other)
  Sender: FDA-Public Use
  Company Number: A0693737A

PATIENT
  Sex: Female

DRUGS (1)
  1. ALLI [Suspect]
     Route: 048
     Dates: start: 20070727

REACTIONS (4)
  - FRACTURE [None]
  - LIGAMENT INJURY [None]
  - LOWER LIMB FRACTURE [None]
  - THERAPEUTIC RESPONSE UNEXPECTED [None]
